FAERS Safety Report 5074532-X (Version None)
Quarter: 2006Q3

REPORT INFORMATION
  Report Type: 
  Country: None (occurrence: None)
  Receive Date: 20060808
  Receipt Date: 20060725
  Transmission Date: 20061208
  Serious: Yes (Other)
  Sender: FDA-Public Use
  Company Number: NO-MERCK-0608NOR00001

PATIENT
  Age: 89 Year
  Sex: Female

DRUGS (2)
  1. INDOCIN [Suspect]
     Route: 065
     Dates: start: 19730101
  2. ASPIRIN [Suspect]
     Route: 065

REACTIONS (4)
  - CARDIAC DISORDER [None]
  - DYSPEPSIA [None]
  - GASTRIC ULCER [None]
  - MYOCARDIAL INFARCTION [None]
